FAERS Safety Report 13559877 (Version 1)
Quarter: 2017Q2

REPORT INFORMATION
  Report Type: Spontaneous
  Country: US (occurrence: US)
  Receive Date: 20170518
  Receipt Date: 20170518
  Transmission Date: 20170830
  Serious: No
  Sender: FDA-Public Use
  Company Number: US-TEVA-762173ACC

PATIENT
  Sex: Female

DRUGS (5)
  1. BUPROPION XL [Concomitant]
     Active Substance: BUPROPION
  2. COPAXONE [Suspect]
     Active Substance: GLATIRAMER ACETATE
     Indication: MULTIPLE SCLEROSIS
  3. SINGULAIR [Concomitant]
     Active Substance: MONTELUKAST SODIUM
  4. PROVIGIL [Concomitant]
     Active Substance: MODAFINIL
  5. PAXIL [Concomitant]
     Active Substance: PAROXETINE HYDROCHLORIDE

REACTIONS (2)
  - Depression [Not Recovered/Not Resolved]
  - Motor dysfunction [Not Recovered/Not Resolved]
